FAERS Safety Report 19098039 (Version 2)
Quarter: 2021Q2

REPORT INFORMATION
  Report Type: Report from Study
  Country: MX (occurrence: MX)
  Receive Date: 20210406
  Receipt Date: 20210422
  Transmission Date: 20210717
  Serious: Yes (Other)
  Sender: FDA-Public Use
  Company Number: NVSC2021MX076532

PATIENT
  Age: 74 Year
  Sex: Male
  Weight: 120 kg

DRUGS (4)
  1. ULTIBRO BREEZHALER [Suspect]
     Active Substance: GLYCOPYRRONIUM\INDACATEROL
     Indication: PRODUCTIVE COUGH
     Dosage: 1 DF, QD
     Route: 055
     Dates: start: 20210215
  2. ULTIBRO BREEZHALER [Suspect]
     Active Substance: GLYCOPYRRONIUM\INDACATEROL
     Indication: SKIN IRRITATION
     Dosage: 1 DF, QD, (7 YEARS AGO)
     Route: 055
  3. ULTIBRO BREEZHALER [Suspect]
     Active Substance: GLYCOPYRRONIUM\INDACATEROL
     Indication: DYSPNOEA
  4. XARELTO [Concomitant]
     Active Substance: RIVAROXABAN
     Indication: COAGULOPATHY
     Dosage: 1 DF, QD
     Route: 048
     Dates: start: 20210220

REACTIONS (6)
  - Blood glucose increased [Unknown]
  - Product use in unapproved indication [Unknown]
  - Rib fracture [Recovered/Resolved with Sequelae]
  - Chest discomfort [Recovered/Resolved with Sequelae]
  - Fall [Recovered/Resolved with Sequelae]
  - Blood pressure increased [Unknown]

NARRATIVE: CASE EVENT DATE: 20210211
